FAERS Safety Report 6786294-6 (Version None)
Quarter: 2010Q2

REPORT INFORMATION
  Report Type: 
  Country: None (occurrence: None)
  Receive Date: 20100623
  Receipt Date: 20100610
  Transmission Date: 20101027
  Serious: Yes (Hospitalization)
  Sender: FDA-Public Use
  Company Number: DE-ROCHE-710617

PATIENT
  Sex: Male
  Weight: 107 kg

DRUGS (6)
  1. MYCOPHENOLATE MOFETIL [Suspect]
     Indication: IMMUNOSUPPRESSION
     Route: 048
     Dates: start: 20090403, end: 20090515
  2. ADVAGRAF [Concomitant]
     Indication: IMMUNOSUPPRESSION
     Route: 048
  3. PREDNISONE [Concomitant]
     Indication: IMMUNOSUPPRESSION
     Route: 048
  4. VALCYTE [Concomitant]
     Indication: PROPHYLAXIS
  5. URSO FALK [Concomitant]
     Route: 048
  6. BETABION [Concomitant]
     Route: 048

REACTIONS (2)
  - IMPAIRED HEALING [None]
  - SUBCUTANEOUS HAEMATOMA [None]
